FAERS Safety Report 25264564 (Version 3)
Quarter: 2025Q3

REPORT INFORMATION
  Report Type: Spontaneous
  Country: US (occurrence: US)
  Receive Date: 20250502
  Receipt Date: 20250814
  Transmission Date: 20251020
  Serious: No
  Sender: NOVARTIS
  Company Number: US-002147023-NVSC2025US068153

PATIENT
  Age: 36 Year
  Sex: Female

DRUGS (1)
  1. LEQVIO [Suspect]
     Active Substance: INCLISIRAN SODIUM
     Indication: Injury
     Route: 065
     Dates: start: 20250409, end: 20250409

REACTIONS (2)
  - Injury associated with device [Recovered/Resolved]
  - Device defective [Recovered/Resolved]
